FAERS Safety Report 13089461 (Version 1)
Quarter: 2017Q1

REPORT INFORMATION
  Report Type: Spontaneous
  Country: US (occurrence: US)
  Receive Date: 20170105
  Receipt Date: 20170105
  Transmission Date: 20170428
  Serious: No
  Sender: FDA-Public Use
  Company Number: US-PFIZER INC-2016604749

PATIENT
  Age: 68 Year
  Sex: Female
  Weight: 68.48 kg

DRUGS (2)
  1. IBRANCE [Suspect]
     Active Substance: PALBOCICLIB
     Dosage: 100 MG, DAILY
     Route: 048
  2. IBRANCE [Suspect]
     Active Substance: PALBOCICLIB
     Indication: BREAST CANCER
     Dosage: 125 MG, CYCLIC (1 TAB EVERY OTHER DAY, 1D-2D Q 28 D)
     Route: 048
     Dates: start: 20161108

REACTIONS (1)
  - White blood cell count decreased [Unknown]
